FAERS Safety Report 11515041 (Version 1)
Quarter: 2015Q3

REPORT INFORMATION
  Report Type: Spontaneous
  Country: CA (occurrence: CA)
  Receive Date: 20150916
  Receipt Date: 20150916
  Transmission Date: 20151125
  Serious: Yes (Other)
  Sender: FDA-Public Use
  Company Number: CA-009507513-1509CAN005459

PATIENT
  Sex: Male

DRUGS (1)
  1. INTRON A [Suspect]
     Active Substance: INTERFERON ALFA-2B
     Indication: MYCOSIS FUNGOIDES
     Dosage: 10 MILLION IU 3 TIMES A WEEK, MONDAY, WEDESDAY, FRIDAY (STRENGTH 18 MIU , 30 MIU, 60 MIU)
     Route: 058
     Dates: start: 20140923

REACTIONS (4)
  - Neutropenia [Unknown]
  - Skin lesion [Unknown]
  - Myalgia [Unknown]
  - Overdose [Unknown]

NARRATIVE: CASE EVENT DATE: 2014
